FAERS Safety Report 4444356-2 (Version None)
Quarter: 2004Q3

REPORT INFORMATION
  Report Type: 
  Country: None (occurrence: None)
  Receive Date: 20040730
  Receipt Date: 20031014
  Transmission Date: 20050211
  Serious: Yes (Death)
  Sender: FDA-Public Use
  Company Number: 03P-163-0237297-00

PATIENT
  Sex: Female

DRUGS (1)
  1. NORVIR [Suspect]

REACTIONS (1)
  - DEATH [None]
